FAERS Safety Report 5518385-1 (Version None)
Quarter: 2007Q4

REPORT INFORMATION
  Report Type: 
  Country: None (occurrence: None)
  Receive Date: 20071115
  Receipt Date: 20071105
  Transmission Date: 20080405
  Serious: Yes (Other)
  Sender: FDA-Public Use
  Company Number: CA-ROCHE-472986

PATIENT
  Age: 39 Year
  Sex: Female

DRUGS (2)
  1. LARIAM [Suspect]
     Indication: MALARIA PROPHYLAXIS
     Dosage: PATIENT TOOK ONLY ONE DOSE
     Route: 048
     Dates: start: 20060101, end: 20060101
  2. WELLBUTRIN [Suspect]
     Indication: PREMENSTRUAL SYNDROME
     Dosage: FORM: SR TABLET
     Route: 048

REACTIONS (5)
  - AGITATION [None]
  - ANXIETY [None]
  - DEPERSONALISATION [None]
  - HALLUCINATION [None]
  - NERVOUSNESS [None]
